FAERS Safety Report 10192004 (Version 1)
Quarter: 2014Q2

REPORT INFORMATION
  Report Type: Report from Study
  Country: US (occurrence: US)
  Receive Date: 20140523
  Receipt Date: 20140523
  Transmission Date: 20141212
  Serious: Yes (Other)
  Sender: FDA-Public Use
  Company Number: US-JNJFOC-20140511026

PATIENT
  Sex: Female
  Weight: 65.77 kg

DRUGS (4)
  1. REMICADE [Suspect]
     Indication: PSORIATIC ARTHROPATHY
     Route: 042
  2. METHOTREXATE [Concomitant]
     Indication: PSORIATIC ARTHROPATHY
     Dosage: 8 PILLS/ WEEKLY
     Route: 048
  3. PREDNISONE [Concomitant]
     Indication: PSORIATIC ARTHROPATHY
     Dosage: 5 MG, DAILY, ORAL
     Route: 048
  4. FLEXERIL [Concomitant]
     Indication: MUSCULOSKELETAL STIFFNESS
     Dosage: 10MG PILL, DAILY
     Route: 048

REACTIONS (1)
  - Lupus-like syndrome [Unknown]
